FAERS Safety Report 8382718-1 (Version None)
Quarter: 2012Q2

REPORT INFORMATION
  Report Type: 
  Country: None (occurrence: None)
  Receive Date: 20120524
  Receipt Date: 20120328
  Transmission Date: 20120825
  Serious: No
  Sender: FDA-Public Use
  Company Number: US-ALLERGAN-1203648US

PATIENT
  Age: 34 Year
  Sex: Female

DRUGS (1)
  1. LASTACAFT [Suspect]
     Indication: CONJUNCTIVITIS ALLERGIC
     Dosage: UNK
     Route: 047
     Dates: start: 20120110, end: 20120117

REACTIONS (1)
  - OCULAR HYPERAEMIA [None]
